FAERS Safety Report 12072149 (Version 1)
Quarter: 2016Q1

REPORT INFORMATION
  Report Type: Spontaneous
  Country: US (occurrence: US)
  Receive Date: 20160212
  Receipt Date: 20160212
  Transmission Date: 20160526
  Serious: No
  Sender: FDA-Public Use
  Company Number: US-BAYER-2016-025715

PATIENT
  Age: 90 Year
  Sex: Male
  Weight: 66.67 kg

DRUGS (3)
  1. MIRALAX [Suspect]
     Active Substance: POLYETHYLENE GLYCOL 3350
     Indication: CONSTIPATION
     Dosage: LAST TEN DAYS 1 DF, QD
     Route: 048
     Dates: start: 201601
  2. MIRALAX [Suspect]
     Active Substance: POLYETHYLENE GLYCOL 3350
     Indication: CONSTIPATION
     Dosage: FEW YEARS AGO ON PRN BASIS
  3. ATENOLOL. [Concomitant]
     Active Substance: ATENOLOL
     Dosage: UNK

REACTIONS (4)
  - Product use issue [None]
  - Product use issue [None]
  - Off label use [None]
  - Expired product administered [None]

NARRATIVE: CASE EVENT DATE: 201601
